FAERS Safety Report 19371840 (Version 1)
Quarter: 2021Q2

REPORT INFORMATION
  Report Type: Other
  Country: DE (occurrence: DE)
  Receive Date: 20210604
  Receipt Date: 20210604
  Transmission Date: 20210717
  Serious: Yes (Other)
  Sender: FDA-Public Use
  Company Number: DE-ROCHE-2838765

PATIENT
  Age: 59 Year
  Sex: Female

DRUGS (4)
  1. HERCEPTIN [Suspect]
     Active Substance: TRASTUZUMAB
     Indication: HER2 POSITIVE BREAST CANCER
     Dosage: 17 CYCLES
     Route: 042
  2. ZOLADEX [Concomitant]
     Active Substance: GOSERELIN ACETATE
  3. TAMOXIFEN [Concomitant]
     Active Substance: TAMOXIFEN
  4. LETROZOL [Concomitant]
     Active Substance: LETROZOLE

REACTIONS (1)
  - Uterine leiomyoma [Recovered/Resolved]
